FAERS Safety Report 7497565-2 (Version None)
Quarter: 2011Q2

REPORT INFORMATION
  Report Type: 
  Country: None (occurrence: None)
  Receive Date: 20110523
  Receipt Date: 20110512
  Transmission Date: 20111010
  Serious: Yes (Death)
  Sender: FDA-Public Use
  Company Number: US-KINGPHARMUSA00001-K201100415

PATIENT
  Sex: Male

DRUGS (2)
  1. AVINZA [Suspect]
     Indication: BACK PAIN
     Dosage: UNK
  2. SUTENT [Suspect]
     Indication: METASTATIC RENAL CELL CARCINOMA
     Dosage: 37.5 MG, UNK
     Route: 048
     Dates: start: 20110315, end: 20110506

REACTIONS (5)
  - DISEASE PROGRESSION [None]
  - DYSGEUSIA [None]
  - DECREASED APPETITE [None]
  - ABDOMINAL PAIN UPPER [None]
  - CONSTIPATION [None]
